FAERS Safety Report 5311775-1 (Version None)
Quarter: 2007Q2

REPORT INFORMATION
  Report Type: 
  Country: None (occurrence: None)
  Receive Date: 20070430
  Receipt Date: 20060908
  Transmission Date: 20071010
  Serious: No
  Sender: FDA-Public Use
  Company Number: 2004UW18435

PATIENT
  Age: 75 Year
  Sex: Female
  Weight: 61.8 kg

DRUGS (9)
  1. NEXIUM [Suspect]
     Indication: GASTROOESOPHAGEAL REFLUX DISEASE
     Route: 048
     Dates: start: 20010101, end: 20060801
  2. NEXIUM [Suspect]
     Indication: THROAT IRRITATION
     Route: 048
     Dates: start: 20010101, end: 20060801
  3. NEXIUM [Suspect]
     Route: 048
     Dates: start: 20060801
  4. NEXIUM [Suspect]
     Route: 048
     Dates: start: 20060801
  5. VITAMINS [Concomitant]
  6. TENORMIN [Concomitant]
  7. PRAVACHOL [Concomitant]
  8. ASPIRIN [Concomitant]
     Route: 048
  9. 9 VITAMINS [Concomitant]
     Route: 048

REACTIONS (3)
  - FEELING ABNORMAL [None]
  - LIMB DISCOMFORT [None]
  - PHARYNGOLARYNGEAL PAIN [None]
